FAERS Safety Report 5099234-5 (Version None)
Quarter: 2006Q3

REPORT INFORMATION
  Report Type: 
  Country: None (occurrence: None)
  Receive Date: 20060731
  Receipt Date: 20051031
  Transmission Date: 20061208
  Serious: Yes (Life-Threatening)
  Sender: FDA-Public Use
  Company Number: 219055

PATIENT
  Age: 38 Year
  Sex: Female

DRUGS (6)
  1. HERCEPTIN [Suspect]
     Indication: BREAST CANCER METASTATIC
     Dates: start: 20020117, end: 20051023
  2. CARBOPLATIN [Concomitant]
  3. TAXOTERE [Concomitant]
  4. ZOMETA [Concomitant]
  5. TAMOXIFEN CITRATE [Concomitant]
  6. FEMARA [Concomitant]

REACTIONS (3)
  - CARDIAC FAILURE CONGESTIVE [None]
  - CARDIOMYOPATHY [None]
  - PLEURAL EFFUSION [None]
